FAERS Safety Report 8719470 (Version 2)
Quarter: 2012Q4

REPORT INFORMATION
  Report Type: 
  Country: US (occurrence: US)
  Receive Date: 20120813
  Receipt Date: 20121010
  Transmission Date: 20130627
  Serious: Yes (Other)
  Sender: FDA-Public Use
  Company Number: US-ELI_LILLY_AND_COMPANY-US201208000579

PATIENT
  Age: 53 None
  Sex: Female

DRUGS (1)
  1. CYMBALTA [Suspect]
     Indication: DEPRESSION
     Dosage: 60 mg, qd
     Route: 065
     Dates: start: 200904

REACTIONS (5)
  - Skin disorder [Recovering/Resolving]
  - Acarodermatitis [Recovering/Resolving]
  - Intentional drug misuse [Recovered/Resolved]
  - Pain [Recovering/Resolving]
  - Rash pruritic [Recovering/Resolving]
